FAERS Safety Report 4606200-X (Version None)
Quarter: 2005Q1

REPORT INFORMATION
  Report Type: 
  Country: None (occurrence: None)
  Receive Date: 20050115
  Receipt Date: 20040722
  Transmission Date: 20050727
  Serious: Yes (Other)
  Sender: FDA-Public Use
  Company Number: A03200402439

PATIENT
  Age: 12 Year
  Sex: Female

DRUGS (2)
  1. AMBIEN [Suspect]
     Indication: INSOMNIA
     Dosage: 10 MG ONCE - ORAL
     Route: 048
     Dates: start: 20040720, end: 20040720
  2. BUPROPION HCL [Concomitant]

REACTIONS (2)
  - AGITATION [None]
  - HALLUCINATION [None]
